FAERS Safety Report 19378911 (Version 1)
Quarter: 2021Q2

REPORT INFORMATION
  Report Type: Spontaneous
  Country: US (occurrence: US)
  Receive Date: 20210606
  Receipt Date: 20210606
  Transmission Date: 20210717
  Serious: Yes (Hospitalization, Other)
  Sender: FDA-Public Use
  Company Number: US-APOTEX-2021AP013250

PATIENT
  Age: 14 Year
  Sex: Female

DRUGS (1)
  1. RISPERIDONE. [Suspect]
     Active Substance: RISPERIDONE
     Indication: PRODUCT USED FOR UNKNOWN INDICATION
     Dosage: UNK
     Route: 065

REACTIONS (12)
  - Anticholinergic syndrome [Recovering/Resolving]
  - Gastrointestinal sounds abnormal [Recovering/Resolving]
  - Delirium [Recovering/Resolving]
  - Product use issue [Unknown]
  - Prescription drug used without a prescription [Unknown]
  - Hypotension [Recovering/Resolving]
  - Sinus tachycardia [Recovering/Resolving]
  - Toxicity to various agents [Recovering/Resolving]
  - Mental status changes [Recovering/Resolving]
  - Aggression [Recovering/Resolving]
  - Mucosal dryness [Recovering/Resolving]
  - Urinary retention [Recovering/Resolving]
